FAERS Safety Report 4556199-X (Version None)
Quarter: 2005Q1

REPORT INFORMATION
  Report Type: 
  Country: None (occurrence: None)
  Receive Date: 20050103
  Receipt Date: 20040922
  Transmission Date: 20050727
  Serious: Yes (Hospitalization)
  Sender: FDA-Public Use
  Company Number: 2004UW16754

PATIENT
  Age: 80 Year
  Sex: Female
  Weight: 48.5349 kg

DRUGS (14)
  1. CRESTOR [Suspect]
     Indication: BLOOD CHOLESTEROL INCREASED
     Dosage: 10 MG PO
     Route: 048
     Dates: start: 20040616
  2. CRESTOR [Suspect]
     Indication: DYSLIPIDAEMIA
     Dosage: 10 MG PO
     Route: 048
     Dates: start: 20040616
  3. ZETIA [Concomitant]
  4. NEXIUM [Concomitant]
  5. ASPIRIN [Concomitant]
  6. ULTREX [Concomitant]
  7. MULTI-VITAMINS [Concomitant]
  8. PRAVACHOL [Concomitant]
  9. FLAXSEED OIL [Concomitant]
  10. CALCIUM WITH VITAMIN D [Concomitant]
  11. GARLIC [Concomitant]
  12. TESSALON [Concomitant]
  13. LOTEMAX [Concomitant]
  14. QUESTRAN [Concomitant]

REACTIONS (3)
  - BRONCHITIS [None]
  - STOMACH DISCOMFORT [None]
  - VISUAL ACUITY REDUCED [None]
